FAERS Safety Report 10241955 (Version 1)
Quarter: 2014Q2

REPORT INFORMATION
  Report Type: Other
  Country: NL (occurrence: NL)
  Receive Date: 20140617
  Receipt Date: 20140617
  Transmission Date: 20141212
  Serious: Yes (Life-Threatening, Other)
  Sender: FDA-Public Use
  Company Number: NL-ASTELLAS-2014EU007822

PATIENT
  Age: 74 Year
  Sex: Female

DRUGS (3)
  1. PROTOPIC [Suspect]
     Indication: VULVAL DISORDER
     Route: 065
     Dates: start: 20130313
  2. SYNAPAUSE E3 [Suspect]
     Indication: PRODUCT USED FOR UNKNOWN INDICATION
     Dosage: UNK UNK, UNKNOWN FREQ.
     Route: 065
  3. DERMOVATE [Concomitant]
     Indication: VULVAL DISORDER
     Route: 065

REACTIONS (4)
  - Neoplasm malignant [Not Recovered/Not Resolved]
  - Lichen planus [None]
  - Eczema [None]
  - Haemorrhage [None]
